FAERS Safety Report 4510312-9 (Version None)
Quarter: 2004Q4

REPORT INFORMATION
  Report Type: 
  Country: None (occurrence: None)
  Receive Date: 20041124
  Receipt Date: 20041117
  Transmission Date: 20050328
  Serious: Yes (Other)
  Sender: FDA-Public Use
  Company Number: US-MERCK-0411USA03083

PATIENT
  Sex: Male

DRUGS (2)
  1. VIOXX [Suspect]
     Route: 065
     Dates: start: 20000501, end: 20010201
  2. VIOXX [Suspect]
     Route: 065
     Dates: start: 20011201, end: 20040101

REACTIONS (1)
  - MYOCARDIAL INFARCTION [None]
